FAERS Safety Report 5144259-4 (Version None)
Quarter: 2006Q4

REPORT INFORMATION
  Report Type: 
  Country: None (occurrence: None)
  Receive Date: 20061102
  Receipt Date: 20061102
  Transmission Date: 20070319
  Serious: Yes (Other)
  Sender: FDA-Public Use
  Company Number: None

PATIENT
  Sex: Female
  Weight: 57.1532 kg

DRUGS (1)
  1. LEVAQUIN [Suspect]
     Indication: SINUSITIS
     Dosage: ONE TABLET  PER DAY  PO
     Route: 048
     Dates: start: 20061027, end: 20061030

REACTIONS (2)
  - PAIN IN EXTREMITY [None]
  - TENDONITIS [None]
